FAERS Safety Report 18896130 (Version 1)
Quarter: 2021Q1

REPORT INFORMATION
  Report Type: Spontaneous
  Country: US (occurrence: US)
  Receive Date: 20210215
  Receipt Date: 20210215
  Transmission Date: 20210420
  Serious: No
  Sender: FDA-Public Use
  Company Number: US-SUNOVION-2021SUN000356

PATIENT
  Age: 65 Year
  Sex: Female

DRUGS (1)
  1. LONHALA MAGNAIR [Suspect]
     Active Substance: GLYCOPYRROLATE
     Dosage: 25 ?G/1ML
     Route: 055

REACTIONS (2)
  - Speech disorder [Unknown]
  - Cough [Unknown]
